FAERS Safety Report 24720993 (Version 11)
Quarter: 2025Q3

REPORT INFORMATION
  Report Type: Report from Study
  Country: CN (occurrence: CN)
  Receive Date: 20241211
  Receipt Date: 20250710
  Transmission Date: 20251020
  Serious: Yes (Death)
  Sender: ROCHE
  Company Number: CN-ROCHE-10000002606

PATIENT
  Age: 71 Year
  Sex: Male
  Weight: 61 kg

DRUGS (26)
  1. POLATUZUMAB VEDOTIN [Suspect]
     Active Substance: POLATUZUMAB VEDOTIN
     Indication: Diffuse large B-cell lymphoma
     Route: 042
     Dates: start: 20240131, end: 20240131
  2. RITUXIMAB [Suspect]
     Active Substance: RITUXIMAB
     Indication: Diffuse large B-cell lymphoma
     Route: 042
     Dates: start: 20240201, end: 20240201
  3. RITUXIMAB [Suspect]
     Active Substance: RITUXIMAB
     Route: 042
     Dates: start: 20240515, end: 20240515
  4. PREDNISONE [Suspect]
     Active Substance: PREDNISONE
     Indication: Diffuse large B-cell lymphoma
     Route: 065
  5. CYCLOPHOSPHAMIDE [Suspect]
     Active Substance: CYCLOPHOSPHAMIDE
     Indication: Diffuse large B-cell lymphoma
     Route: 042
     Dates: start: 20240202, end: 20240202
  6. DOXORUBICIN [Suspect]
     Active Substance: DOXORUBICIN
     Indication: Diffuse large B-cell lymphoma
     Route: 042
     Dates: start: 20240202, end: 20240202
  7. BENDAMUSTINE [Suspect]
     Active Substance: BENDAMUSTINE
     Indication: Diffuse large B-cell lymphoma
     Dosage: START 16-MAY-2024
     Route: 042
     Dates: end: 20240517
  8. BENDAMUSTINE [Suspect]
     Active Substance: BENDAMUSTINE
     Dosage: START 16-MAY-2024
     Route: 042
     Dates: end: 20240517
  9. POSACONAZOLE [Concomitant]
     Active Substance: POSACONAZOLE
     Route: 048
     Dates: start: 20240417
  10. POSACONAZOLE [Concomitant]
     Active Substance: POSACONAZOLE
     Route: 048
     Dates: start: 20240322, end: 20240324
  11. METHYLPREDNISOLONE [Concomitant]
     Active Substance: METHYLPREDNISOLONE
     Route: 048
     Dates: start: 20240225
  12. Inj Promethazine [Concomitant]
     Route: 030
     Dates: start: 20240515, end: 20240515
  13. Hydrocortisone Sodium Succinate Needle [Concomitant]
     Route: 042
     Dates: start: 20240515, end: 20240515
  14. DIPHENHYDRAMINE HYDROCHLORIDE [Concomitant]
     Active Substance: DIPHENHYDRAMINE HYDROCHLORIDE
     Route: 030
     Dates: start: 20240515, end: 20240515
  15. ESOMEPRAZOLE SODIUM [Concomitant]
     Active Substance: ESOMEPRAZOLE SODIUM
     Route: 042
     Dates: start: 20240515, end: 20240517
  16. TORSEMIDE [Concomitant]
     Active Substance: TORSEMIDE
     Route: 042
     Dates: start: 20240515, end: 20240515
  17. MAGNESIUM ISOGLYCYRRHIZINATE [Concomitant]
     Active Substance: MAGNESIUM ISOGLYCYRRHIZINATE
     Route: 042
     Dates: start: 20240516, end: 20240517
  18. Creatine Phosphate Sodium for Injection [Concomitant]
     Route: 042
     Dates: start: 20240516, end: 20240517
  19. Tropisetron Injection [Concomitant]
     Route: 042
     Dates: start: 20240516, end: 20240517
  20. Tropisetron Injection [Concomitant]
     Route: 042
     Dates: start: 20240224, end: 20240224
  21. Injectable Spearhead Viper Hemocoagulase [Concomitant]
     Route: 048
     Dates: start: 20240205, end: 20240207
  22. Potassium Chloride Sustained-release Tablets [Concomitant]
     Route: 048
     Dates: start: 20240203, end: 20240205
  23. Potassium Chloride Sustained-release Tablets [Concomitant]
     Route: 048
     Dates: start: 20240119, end: 20240225
  24. Potassium Chloride Sustained-release Tablets [Concomitant]
     Route: 048
     Dates: start: 20240119, end: 20240225
  25. Potassium Chloride Sustained-release Tablets [Concomitant]
     Route: 048
     Dates: start: 20240323, end: 20240323
  26. Potassium Chloride Sustained-release Tablets [Concomitant]
     Route: 048
     Dates: start: 20240323, end: 20240323

REACTIONS (4)
  - Pneumonia [Fatal]
  - Hypokalaemia [Recovered/Resolved]
  - Faecal occult blood [Not Recovered/Not Resolved]
  - Faecal occult blood positive [Not Recovered/Not Resolved]

NARRATIVE: CASE EVENT DATE: 20240203
